FAERS Safety Report 25337649 (Version 2)
Quarter: 2025Q2

REPORT INFORMATION
  Report Type: Spontaneous
  Country: DE (occurrence: DE)
  Receive Date: 20250520
  Receipt Date: 20250623
  Transmission Date: 20250716
  Serious: Yes (Hospitalization, Other)
  Sender: ALNYLAM PHARMACEUTICALS
  Company Number: DE-ALNYLAM PHARMACEUTICALS, INC.-ALN-2025-002993

PATIENT

DRUGS (3)
  1. OXLUMO [Suspect]
     Active Substance: LUMASIRAN
     Indication: Product used for unknown indication
     Dosage: 189 MILLIGRAM, MONTHLY
     Route: 065
     Dates: start: 20220607, end: 20220607
  2. OXLUMO [Suspect]
     Active Substance: LUMASIRAN
     Dosage: 3 MILLIGRAM/KILOGRAM, Q3M
     Route: 065
     Dates: start: 20220912, end: 20220912
  3. NEDOSIRAN [Concomitant]
     Active Substance: NEDOSIRAN
     Indication: Product used for unknown indication
     Route: 065

REACTIONS (4)
  - Lithiasis [Not Recovered/Not Resolved]
  - Urine oxalate increased [Unknown]
  - Drug ineffective [Unknown]
  - Haemoglobin increased [Unknown]

NARRATIVE: CASE EVENT DATE: 20240129
